FAERS Safety Report 8318581-4 (Version None)
Quarter: 2012Q1

REPORT INFORMATION
  Report Type: 
  Country: None (occurrence: None)
  Receive Date: 20120315
  Receipt Date: 20110425
  Transmission Date: 20120608
  Serious: Yes (Other)
  Sender: FDA-Public Use
  Company Number: PHHY2011US34341

PATIENT
  Age: 61 Year
  Sex: Female

DRUGS (6)
  1. CARDIZEM [Concomitant]
  2. COZAAR [Concomitant]
  3. GILENYA [Suspect]
     Indication: MULTIPLE SCLEROSIS
     Dosage: 0.5 MG, QD, ORAL
     Route: 048
     Dates: start: 20101124, end: 20110404
  4. AMPYRA [Concomitant]
  5. PROTONIX [Concomitant]
  6. BACLOFEN [Concomitant]

REACTIONS (3)
  - CD4 LYMPHOCYTES DECREASED [None]
  - CD8 LYMPHOCYTES DECREASED [None]
  - FATIGUE [None]
